FAERS Safety Report 9284164 (Version 1)
Quarter: 2013Q2

REPORT INFORMATION
  Report Type: Spontaneous
  Country: US (occurrence: US)
  Receive Date: 20130510
  Receipt Date: 20130510
  Transmission Date: 20140414
  Serious: Yes (Other)
  Sender: FDA-Public Use
  Company Number: CHPA2013US008046

PATIENT
  Age: 47 Year
  Sex: Female

DRUGS (2)
  1. PREVACID 24HR 15MG [Suspect]
     Indication: GASTROOESOPHAGEAL REFLUX DISEASE
     Dosage: 15 MG, QD
     Route: 048
     Dates: start: 20130504, end: 20130505
  2. PREVACID 24HR 15MG [Suspect]
     Indication: DYSPEPSIA

REACTIONS (8)
  - Abasia [Not Recovered/Not Resolved]
  - Movement disorder [Recovered/Resolved]
  - Myalgia [Not Recovered/Not Resolved]
  - Pain [Not Recovered/Not Resolved]
  - Sleep disorder [Not Recovered/Not Resolved]
  - Drug hypersensitivity [Unknown]
  - Off label use [Unknown]
  - Therapeutic response unexpected [Unknown]
